FAERS Safety Report 15404552 (Version 2)
Quarter: 2018Q3

REPORT INFORMATION
  Report Type: Spontaneous
  Country: US (occurrence: US)
  Receive Date: 20180919
  Receipt Date: 20180919
  Transmission Date: 20181010
  Serious: Yes (Hospitalization)
  Sender: FDA-Public Use
  Company Number: US-VIFOR (INTERNATIONAL) INC.-VIT-2018-09203

PATIENT
  Age: 74 Year
  Sex: Female

DRUGS (11)
  1. ALPHA LIPOIC ACID [Concomitant]
     Active Substance: .ALPHA.-LIPOIC ACID
  2. LOVASTATIN. [Concomitant]
     Active Substance: LOVASTATIN
  3. CINNAMON. [Concomitant]
     Active Substance: CINNAMON
  4. OMEGA 3?6?9 COMPLEX [Concomitant]
  5. CORAL CALCIUM PLUS [Concomitant]
  6. ASPIRIN. [Concomitant]
     Active Substance: ASPIRIN
  7. LEVOTHYROXINE SODIUM. [Concomitant]
     Active Substance: LEVOTHYROXINE SODIUM
  8. PLAVIX [Concomitant]
     Active Substance: CLOPIDOGREL BISULFATE
  9. MULTIVITAMIN ADULT [Concomitant]
  10. JANUVIA [Concomitant]
     Active Substance: SITAGLIPTIN PHOSPHATE
  11. VELTASSA [Suspect]
     Active Substance: PATIROMER
     Indication: HYPERKALAEMIA
     Route: 048
     Dates: start: 20170804

REACTIONS (2)
  - Inappropriate schedule of drug administration [Unknown]
  - Pancreatitis [Unknown]

NARRATIVE: CASE EVENT DATE: 201808
